FAERS Safety Report 24803443 (Version 2)
Quarter: 2025Q4

REPORT INFORMATION
  Report Type: Spontaneous
  Country: US (occurrence: US)
  Receive Date: 20250103
  Receipt Date: 20251031
  Transmission Date: 20260117
  Serious: No
  Sender: GSK
  Company Number: US-GSKCCFUS-Case-02170070_AE-119537

PATIENT
  Age: 22 Year
  Sex: Female

DRUGS (1)
  1. NUCALA [Suspect]
     Active Substance: MEPOLIZUMAB
     Indication: Hypereosinophilic syndrome
     Dosage: 300 MG

REACTIONS (1)
  - Exposure during pregnancy [Unknown]
